FAERS Safety Report 23866558 (Version 1)
Quarter: 2024Q2

REPORT INFORMATION
  Report Type: Spontaneous
  Country: CN (occurrence: CN)
  Receive Date: 20240517
  Receipt Date: 20240517
  Transmission Date: 20240715
  Serious: Yes (Hospitalization, Other)
  Sender: FDA-Public Use
  Company Number: CN-002147023-NVSC2024CN103528

PATIENT
  Age: 81 Year
  Sex: Female
  Weight: 48 kg

DRUGS (8)
  1. DICLOFENAC SODIUM [Suspect]
     Active Substance: DICLOFENAC\DICLOFENAC SODIUM
     Indication: Myalgia
     Dosage: 75 MG, QD
     Route: 048
     Dates: start: 20240423, end: 20240424
  2. LORNOXICAM [Suspect]
     Active Substance: LORNOXICAM
     Indication: Myalgia
     Dosage: 8 MG, QD
     Route: 030
     Dates: start: 20240423, end: 20240423
  3. CLOPIDOGREL BISULFATE [Suspect]
     Active Substance: CLOPIDOGREL BISULFATE
     Indication: Cerebral infarction
     Dosage: 75 MG, QD
     Route: 048
     Dates: start: 20240401, end: 20240427
  4. HEMOGLOBIN [Concomitant]
     Active Substance: HEMOGLOBIN
     Indication: Product used for unknown indication
     Dosage: 108 UNK (G/L)
     Route: 065
     Dates: start: 20240429
  5. HEMOGLOBIN [Concomitant]
     Active Substance: HEMOGLOBIN
     Dosage: 118 UNK (G/L)
     Route: 065
     Dates: start: 20240504
  6. SODIUM CHLORIDE [Concomitant]
     Active Substance: SODIUM CHLORIDE
     Indication: Vehicle solution use
     Dosage: 40 ML, BID
     Route: 065
     Dates: start: 20240428
  7. SODIUM CHLORIDE [Concomitant]
     Active Substance: SODIUM CHLORIDE
     Dosage: 48 ML, BID
     Route: 065
     Dates: start: 20240428
  8. SODIUM CHLORIDE [Concomitant]
     Active Substance: SODIUM CHLORIDE
     Dosage: 100 ML, BID
     Route: 065
     Dates: start: 20240429

REACTIONS (3)
  - Upper gastrointestinal haemorrhage [Recovering/Resolving]
  - Haematochezia [Recovering/Resolving]
  - Gastric ulcer [Recovering/Resolving]

NARRATIVE: CASE EVENT DATE: 20240427
